FAERS Safety Report 6623940-1 (Version None)
Quarter: 2010Q1

REPORT INFORMATION
  Report Type: 
  Country: None (occurrence: None)
  Receive Date: 20100310
  Receipt Date: 20100301
  Transmission Date: 20100710
  Serious: Yes (Hospitalization)
  Sender: FDA-Public Use
  Company Number: FR-ASTRAZENECA-2010SE09047

PATIENT
  Age: 42 Year
  Sex: Male

DRUGS (3)
  1. NEXIUM [Suspect]
     Route: 042
     Dates: start: 20091226
  2. VFEND [Suspect]
     Route: 042
     Dates: start: 20091218
  3. VFEND [Suspect]
     Route: 042
     Dates: end: 20091230

REACTIONS (1)
  - OVERDOSE [None]
